FAERS Safety Report 8844937 (Version 2)
Quarter: 2012Q4

REPORT INFORMATION
  Report Type: 
  Country: GB (occurrence: GB)
  Receive Date: 20121017
  Receipt Date: 20121019
  Transmission Date: 20130627
  Serious: Yes (Death)
  Sender: FDA-Public Use
  Company Number: PHFR2012GB005434

PATIENT
  Sex: Male

DRUGS (7)
  1. CLOZARIL [Suspect]
     Indication: SCHIZOPHRENIA
     Route: 048
     Dates: start: 20040407
  2. CLOZAPINE [Concomitant]
     Dates: start: 201110
  3. RAMIPRIL [Concomitant]
     Dosage: 10 mg, daily
     Dates: start: 201110
  4. PROPRANOLOL [Concomitant]
     Dosage: 80 mg, daily
     Dates: start: 201110
  5. BENDROFLUMETHIAZIDE [Concomitant]
     Dosage: 2.5 mg, daily
     Dates: start: 201110
  6. XATRAL                                  /FRA/ [Concomitant]
     Dosage: 10 mg
     Dates: start: 201110
  7. FINASTERIDE [Concomitant]
     Dosage: 5 mg
     Dates: start: 201110

REACTIONS (1)
  - Death [Fatal]
